FAERS Safety Report 16069779 (Version 1)
Quarter: 2019Q1

REPORT INFORMATION
  Report Type: Spontaneous
  Country: US (occurrence: US)
  Receive Date: 20190314
  Receipt Date: 20190314
  Transmission Date: 20190418
  Serious: No
  Sender: FDA-Public Use
  Company Number: US-009507513-1903USA004846

PATIENT
  Age: 18 Year
  Sex: Female
  Weight: 64.85 kg

DRUGS (2)
  1. NEXPLANON [Suspect]
     Active Substance: ETONOGESTREL
     Indication: CONTRACEPTION
     Dosage: 1 IMPLANT EVERY 3 YEARS
     Route: 059
     Dates: start: 20181030
  2. VITAMINS (UNSPECIFIED) [Concomitant]
     Active Substance: VITAMINS
     Dosage: ONE A DAY

REACTIONS (5)
  - Abdominal distension [Not Recovered/Not Resolved]
  - Implant site pain [Recovered/Resolved]
  - Weight increased [Not Recovered/Not Resolved]
  - Emotional disorder [Not Recovered/Not Resolved]
  - Menorrhagia [Not Recovered/Not Resolved]

NARRATIVE: CASE EVENT DATE: 201810
